FAERS Safety Report 7817970-1 (Version None)
Quarter: 2011Q4

REPORT INFORMATION
  Report Type: 
  Country: None (occurrence: None)
  Receive Date: 20111017
  Receipt Date: 20111007
  Transmission Date: 20120403
  Serious: Yes (Other)
  Sender: FDA-Public Use
  Company Number: JP-GLAXOSMITHKLINE-B0754545A

PATIENT
  Age: 88 Year
  Sex: Female

DRUGS (2)
  1. TYKERB [Suspect]
     Indication: BREAST CANCER
     Route: 048
  2. XELODA [Suspect]
     Indication: BREAST CANCER
     Route: 048

REACTIONS (3)
  - STAPHYLOCOCCAL INFECTION [None]
  - INJURY [None]
  - PURULENCE [None]
